FAERS Safety Report 19771003 (Version 1)
Quarter: 2021Q3

REPORT INFORMATION
  Report Type: Spontaneous
  Country: JP (occurrence: JP)
  Receive Date: 20210901
  Receipt Date: 20210901
  Transmission Date: 20211014
  Serious: Yes (Life-Threatening, Other)
  Sender: FDA-Public Use
  Company Number: JP-PFIZER INC-202101065418

PATIENT
  Age: 73 Year
  Sex: Female

DRUGS (12)
  1. RITUXIMAB. [Suspect]
     Active Substance: RITUXIMAB
     Dosage: 480 MG, DAILY
     Dates: start: 2019, end: 2019
  2. METHYLPREDNISOLONE SODIUM SUCCINATE. [Suspect]
     Active Substance: METHYLPREDNISOLONE SODIUM SUCCINATE
     Indication: INTERSTITIAL LUNG DISEASE
     Dosage: 1000 MG, DAILY
     Dates: start: 2019, end: 2019
  3. TACROLIMUS. [Suspect]
     Active Substance: TACROLIMUS
     Indication: INTERSTITIAL LUNG DISEASE
     Dosage: 1.5?4 MG, DAILY
     Dates: start: 2019, end: 2019
  4. CYCLOPHOSPHAMIDE. [Suspect]
     Active Substance: CYCLOPHOSPHAMIDE
     Dosage: 1000 MG, DAILY
     Route: 042
     Dates: start: 2019, end: 2019
  5. CYCLOPHOSPHAMIDE. [Suspect]
     Active Substance: CYCLOPHOSPHAMIDE
     Dosage: 1000 MG, DAILY
     Route: 042
     Dates: start: 2019, end: 2019
  6. METHYLPREDNISOLONE SODIUM SUCCINATE. [Suspect]
     Active Substance: METHYLPREDNISOLONE SODIUM SUCCINATE
     Dosage: 1000 MG, DAILY
     Dates: start: 2019, end: 2019
  7. METHYLPREDNISOLONE SODIUM SUCCINATE. [Suspect]
     Active Substance: METHYLPREDNISOLONE SODIUM SUCCINATE
     Dosage: 1000 MG, DAILY
     Dates: start: 2019, end: 2019
  8. METHYLPREDNISOLONE SODIUM SUCCINATE. [Suspect]
     Active Substance: METHYLPREDNISOLONE SODIUM SUCCINATE
     Dosage: 500 MG, DAILY
     Dates: start: 2019, end: 2019
  9. PREDNISOLONE. [Suspect]
     Active Substance: PREDNISOLONE
     Indication: INTERSTITIAL LUNG DISEASE
     Dosage: 50 MG, DAILY
     Dates: start: 2019
  10. CYCLOPHOSPHAMIDE. [Suspect]
     Active Substance: CYCLOPHOSPHAMIDE
     Indication: INTERSTITIAL LUNG DISEASE
     Dosage: 1000 MG, DAILY
     Route: 042
     Dates: start: 2019, end: 2019
  11. OXYGEN. [Concomitant]
     Active Substance: OXYGEN
     Indication: INTERSTITIAL LUNG DISEASE
     Dosage: UNK
     Dates: start: 2019, end: 201911
  12. RITUXIMAB. [Suspect]
     Active Substance: RITUXIMAB
     Indication: INTERSTITIAL LUNG DISEASE
     Dosage: 480 MG, DAILY
     Dates: start: 2019, end: 2019

REACTIONS (4)
  - Drug ineffective for unapproved indication [Unknown]
  - Immunosuppression [Unknown]
  - Off label use [Unknown]
  - Pneumonia pseudomonal [Unknown]

NARRATIVE: CASE EVENT DATE: 2019
